FAERS Safety Report 7403729-6 (Version None)
Quarter: 2011Q2

REPORT INFORMATION
  Report Type: 
  Country: None (occurrence: None)
  Receive Date: 20110408
  Receipt Date: 20110331
  Transmission Date: 20111010
  Serious: Yes (Hospitalization, Other)
  Sender: FDA-Public Use
  Company Number: US-BRISTOL-MYERS SQUIBB COMPANY-15457013

PATIENT
  Age: 84 Year
  Sex: Male

DRUGS (20)
  1. LIPITOR [Concomitant]
     Route: 048
  2. KLOR-CON [Concomitant]
     Route: 048
  3. COUMADIN [Concomitant]
     Route: 048
  4. ISOSORBIDE MONONITRATE [Concomitant]
     Route: 048
  5. LASIX [Concomitant]
     Route: 048
  6. CENTRUM SILVER [Concomitant]
  7. BETAMETHASONE DIPROPIONATE [Concomitant]
  8. VITAMIN B6 [Concomitant]
  9. GLIPIZIDE [Concomitant]
     Dosage: GLIPIZIDE XL
  10. GLUCOPHAGE [Concomitant]
     Route: 048
  11. DIGOXIN [Concomitant]
  12. TOPROL-XL [Concomitant]
     Dosage: 1DF=1/2TABLET TOPROL 100MG
  13. ONGLYZA [Suspect]
  14. ASCORBIC ACID [Concomitant]
  15. HYALURONIC ACID [Concomitant]
  16. ACTOS [Concomitant]
  17. VERAPAMIL EXTENDED-RELEASE [Concomitant]
  18. ZYRTEC [Concomitant]
     Route: 048
  19. FOLIC ACID [Concomitant]
  20. VITAMIN D [Concomitant]
     Dosage: 1DF=1000UNITS

REACTIONS (2)
  - PANCREATIC PSEUDOCYST [None]
  - PANCREATITIS [None]
